FAERS Safety Report 6431724-2 (Version None)
Quarter: 2009Q4

REPORT INFORMATION
  Report Type: 
  Country: None (occurrence: None)
  Receive Date: 20091103
  Receipt Date: 20091019
  Transmission Date: 20100525
  Serious: Yes (Hospitalization)
  Sender: FDA-Public Use
  Company Number: 02100-JPN-07-0438

PATIENT
  Age: 62 Year
  Sex: Female
  Weight: 66 kg

DRUGS (4)
  1. PLETAL [Suspect]
     Indication: CEREBRAL INFARCTION
     Dosage: 81 MG;QD;ORAL
     Route: 048
     Dates: start: 20050903, end: 20070823
  2. SIMVASTATIN [Concomitant]
  3. CANDESARTAN CILEXETIL [Concomitant]
  4. NORVASC [Concomitant]

REACTIONS (3)
  - DYSURIA [None]
  - MALAISE [None]
  - PYELONEPHRITIS ACUTE [None]
